FAERS Safety Report 13241445 (Version 1)
Quarter: 2017Q1

REPORT INFORMATION
  Report Type: Spontaneous
  Country: AU (occurrence: AU)
  Receive Date: 20170216
  Receipt Date: 20170216
  Transmission Date: 20170428
  Serious: Yes (Other)
  Sender: FDA-Public Use
  Company Number: AU-PFIZER INC-2017064206

PATIENT
  Age: 76 Year
  Sex: Female

DRUGS (9)
  1. BOSENTAN. [Concomitant]
     Active Substance: BOSENTAN
     Dosage: 62.5 MG, 2X/DAY
  2. DENOSUMAB [Concomitant]
     Active Substance: DENOSUMAB
     Dosage: 60MG S/C SIX-MONTHLY
     Route: 058
  3. CALCIUM CARBONATE. [Concomitant]
     Active Substance: CALCIUM CARBONATE
     Dosage: 600 MG, DAILY
  4. PREDNISONE. [Concomitant]
     Active Substance: PREDNISONE
     Dosage: 15 MG, DAILY
  5. FUROSEMIDE. [Concomitant]
     Active Substance: FUROSEMIDE
     Dosage: 20 MG, DAILY
  6. CHOLECALCIFEROL [Concomitant]
     Active Substance: CHOLECALCIFEROL
     Dosage: 1000 IU, DAILY
  7. HYDROCORTISONE SODIUM SUCCINATE [Suspect]
     Active Substance: HYDROCORTISONE SODIUM SUCCINATE
     Dosage: STRESS HYDROCORTISONE DOSES
     Route: 042
  8. DEXTROSE. [Suspect]
     Active Substance: DEXTROSE
     Dosage: TWO STAT BOLUSES OF DEXTROSE
  9. ESOMEPRAZOLE [Concomitant]
     Active Substance: ESOMEPRAZOLE
     Dosage: 20 MG, DAILY

REACTIONS (3)
  - Hyperglycaemia [Unknown]
  - Diabetic ketoacidosis [Unknown]
  - Condition aggravated [Unknown]
